FAERS Safety Report 8197132-1 (Version None)
Quarter: 2012Q1

REPORT INFORMATION
  Report Type: 
  Country: None (occurrence: None)
  Receive Date: 20120309
  Receipt Date: 20120227
  Transmission Date: 20120608
  Serious: Yes (Death, Hospitalization, Other)
  Sender: FDA-Public Use
  Company Number: US-ASTELLAS-2012US001268

PATIENT
  Sex: Female

DRUGS (8)
  1. TARCEVA [Suspect]
     Indication: NON-SMALL CELL LUNG CANCER
     Dosage: 150 MG, UID/QD
     Route: 048
     Dates: start: 20070301, end: 20070501
  2. AVASTIN [Suspect]
     Indication: NON-SMALL CELL LUNG CANCER
     Dosage: 1050 MG, Q3W
     Route: 042
     Dates: start: 20070215, end: 20070220
  3. ATIVAN [Concomitant]
     Indication: VOMITING
     Dosage: 0.5 MG, UNKNOWN/D
     Route: 048
     Dates: start: 20070119
  4. FOLIC ACID [Concomitant]
     Indication: PRODUCT USED FOR UNKNOWN INDICATION
     Dosage: 1 MG, UID/QD
     Route: 048
     Dates: start: 20070213
  5. TUSSIONEX [Concomitant]
     Indication: PRODUCT USED FOR UNKNOWN INDICATION
     Dosage: UNK
     Route: 065
  6. PEMETREXED [Suspect]
     Indication: NON-SMALL CELL LUNG CANCER
     Dosage: 825 MG, Q3W
     Route: 042
     Dates: start: 20070215, end: 20070419
  7. MORPHINE SULFATE [Concomitant]
     Indication: PAIN
     Dosage: 15 MG, 1 IN 4 WEEKS
     Route: 048
     Dates: start: 20070419
  8. LEXAPRO [Concomitant]
     Indication: DEPRESSION
     Dosage: 10 MG, UID/QD
     Route: 048
     Dates: start: 20070419

REACTIONS (9)
  - ASTHENIA [None]
  - FATIGUE [None]
  - DISEASE PROGRESSION [None]
  - HYPOPHAGIA [None]
  - NAUSEA [None]
  - MALIGNANT PLEURAL EFFUSION [None]
  - DEATH [None]
  - HOSPITALISATION [None]
  - DYSPNOEA [None]
